FAERS Safety Report 10838840 (Version 1)
Quarter: 2015Q1

REPORT INFORMATION
  Report Type: Spontaneous
  Country: NL (occurrence: None)
  Receive Date: 20150218
  Receipt Date: 20150218
  Transmission Date: 20150721
  Serious: Yes (Hospitalization, Other)
  Sender: FDA-Public Use
  Company Number: 2015NL001280

PATIENT
  Sex: Male

DRUGS (1)
  1. ELIGARD [Suspect]
     Active Substance: LEUPROLIDE ACETATE
     Indication: PROSTATE CANCER
     Dosage: UNK, OTHER, ONCE EVERY 3 MONTHS, SUBCUTANEOUS
     Route: 058

REACTIONS (3)
  - Dyspnoea [None]
  - Metastases to abdominal cavity [None]
  - Ascites [None]
